FAERS Safety Report 9019150 (Version 1)
Quarter: 2013Q1

REPORT INFORMATION
  Report Type: Spontaneous
  Country: US (occurrence: US)
  Receive Date: 20130118
  Receipt Date: 20130118
  Transmission Date: 20140127
  Serious: Yes (Other)
  Sender: FDA-Public Use
  Company Number: US-TARO-2013P1000009

PATIENT
  Age: 77 Year
  Sex: Female
  Weight: 90.72 kg

DRUGS (6)
  1. WARFARIN SODIUM [Suspect]
     Route: 048
     Dates: start: 2009
  2. WARFARIN SODIUM [Suspect]
     Route: 048
     Dates: start: 2009
  3. FUROSEMIDE [Concomitant]
  4. ISOSORBIDE DINITRATE [Concomitant]
  5. LISINOPRIL [Concomitant]
  6. SERTRALINE [Concomitant]

REACTIONS (12)
  - Alopecia [Not Recovered/Not Resolved]
  - Glossodynia [Not Recovered/Not Resolved]
  - Trichorrhexis [Not Recovered/Not Resolved]
  - Reaction to drug excipients [Unknown]
  - Headache [Not Recovered/Not Resolved]
  - Feeling hot [Not Recovered/Not Resolved]
  - Nail discolouration [Recovering/Resolving]
  - Increased tendency to bruise [Not Recovered/Not Resolved]
  - Gait disturbance [Not Recovered/Not Resolved]
  - Fall [Not Recovered/Not Resolved]
  - Dizziness [Not Recovered/Not Resolved]
  - Epistaxis [Not Recovered/Not Resolved]
